FAERS Safety Report 14675235 (Version 1)
Quarter: 2018Q1

REPORT INFORMATION
  Report Type: Spontaneous
  Country: US (occurrence: US)
  Receive Date: 20180323
  Receipt Date: 20180323
  Transmission Date: 20180509
  Serious: Yes (Other)
  Sender: FDA-Public Use
  Company Number: US-LPDUSPRD-20180391

PATIENT
  Sex: Female
  Weight: 63 kg

DRUGS (3)
  1. MIRCERA [Suspect]
     Active Substance: METHOXY POLYETHYLENE GLYCOL-EPOETIN BETA
     Dosage: 25OCT: 50 OTHER
     Route: 065
  2. VENOFER [Suspect]
     Active Substance: IRON SUCROSE
     Dosage: 25OCT: 50 OTHER
     Route: 065
  3. ERGOCALCIFEROL, RETINOL, CALCIUM CARBONATE [Concomitant]
     Dosage: 1 MCG
     Route: 040

REACTIONS (1)
  - Aplasia pure red cell [Unknown]
